FAERS Safety Report 13829910 (Version 5)
Quarter: 2018Q2

REPORT INFORMATION
  Report Type: Spontaneous
  Country: US (occurrence: US)
  Receive Date: 20170803
  Receipt Date: 20180410
  Transmission Date: 20180711
  Serious: Yes (Hospitalization, Other)
  Sender: FDA-Public Use
  Company Number: US-TEVA-771535USA

PATIENT
  Age: 40 Year
  Sex: Female

DRUGS (3)
  1. SORIATANE [Suspect]
     Active Substance: ACITRETIN
     Indication: KERATOSIS FOLLICULAR
     Dosage: 20 MILLIGRAM DAILY;
     Route: 048
     Dates: start: 2007
  2. SORIATANE [Suspect]
     Active Substance: ACITRETIN
     Indication: PSORIASIS
     Dosage: 10 MILLIGRAM DAILY;
     Route: 048
     Dates: start: 2009
  3. SORIATANE [Suspect]
     Active Substance: ACITRETIN
     Indication: SKIN DISORDER

REACTIONS (7)
  - Skin ulcer [Unknown]
  - Infection [Unknown]
  - Seizure [Unknown]
  - Drug dose omission [Unknown]
  - Generalised oedema [Unknown]
  - Skin reaction [Unknown]
  - Skin infection [Recovering/Resolving]
